FAERS Safety Report 6304083-3 (Version None)
Quarter: 2009Q3

REPORT INFORMATION
  Report Type: 
  Country: None (occurrence: None)
  Receive Date: 20090810
  Receipt Date: 20090810
  Transmission Date: 20100115
  Serious: Yes (Disabling)
  Sender: FDA-Public Use
  Company Number: None

PATIENT
  Age: 54 Year
  Sex: Female

DRUGS (1)
  1. SOTRADECOL [Suspect]
     Indication: TELANGIECTASIA
     Dosage: 0.5CC 1 IV
     Route: 042
     Dates: start: 20090724, end: 20090724

REACTIONS (3)
  - NECROSIS [None]
  - POST PROCEDURAL COMPLICATION [None]
  - VEIN DISORDER [None]
